FAERS Safety Report 13266557 (Version 1)
Quarter: 2017Q1

REPORT INFORMATION
  Report Type: Spontaneous
  Country: IT (occurrence: IT)
  Receive Date: 20170223
  Receipt Date: 20170223
  Transmission Date: 20170428
  Serious: Yes (Hospitalization)
  Sender: FDA-Public Use
  Company Number: IT-JNJFOC-20170214566

PATIENT
  Age: 13 Year
  Sex: Male

DRUGS (8)
  1. VALPROATE [Suspect]
     Active Substance: VALPROIC ACID
     Indication: EPILEPSY
     Route: 065
  2. IBUPROFEN. [Suspect]
     Active Substance: IBUPROFEN
     Indication: PYREXIA
     Route: 065
  3. PARACETAMOL [Suspect]
     Active Substance: ACETAMINOPHEN
     Indication: PYREXIA
     Dosage: A TOTAL DOSE OF 6 G/DAY OF PARACETAMOL, 160 MG/KG/DAY OR 4 G/DAY, EQUAL TO 100 MG/KG/DAY
     Route: 048
  4. LAMOTRIGINE. [Suspect]
     Active Substance: LAMOTRIGINE
     Indication: EPILEPSY
     Route: 065
  5. PARACETAMOL [Suspect]
     Active Substance: ACETAMINOPHEN
     Indication: DIARRHOEA
     Dosage: A TOTAL DOSE OF 6 G/DAY OF PARACETAMOL, 160 MG/KG/DAY OR 4 G/DAY, EQUAL TO 100 MG/KG/DAY
     Route: 048
  6. PARACETAMOL [Suspect]
     Active Substance: ACETAMINOPHEN
     Indication: VOMITING
     Dosage: A TOTAL DOSE OF 6 G/DAY OF PARACETAMOL, 160 MG/KG/DAY OR 4 G/DAY, EQUAL TO 100 MG/KG/DAY
     Route: 048
  7. TOPIRAMATE. [Suspect]
     Active Substance: TOPIRAMATE
     Indication: EPILEPSY
     Route: 065
  8. IBUPROFEN. [Suspect]
     Active Substance: IBUPROFEN
     Route: 065

REACTIONS (1)
  - Acute hepatic failure [Recovering/Resolving]
